FAERS Safety Report 26078275 (Version 2)
Quarter: 2025Q4

REPORT INFORMATION
  Report Type: Spontaneous
  Country: US (occurrence: US)
  Receive Date: 20251122
  Receipt Date: 20251204
  Transmission Date: 20260117
  Serious: No
  Sender: SERVIER
  Company Number: US-SERVIER-S25016320

PATIENT

DRUGS (2)
  1. VORANIGO [Suspect]
     Active Substance: VORASIDENIB
     Indication: Product used for unknown indication
     Dosage: UNK
     Route: 048
     Dates: start: 20251106, end: 202511
  2. VORANIGO [Suspect]
     Active Substance: VORASIDENIB
     Dosage: UNK
     Route: 048
     Dates: start: 20251110

REACTIONS (5)
  - Flushing [Unknown]
  - Burning sensation [Unknown]
  - Arthralgia [Unknown]
  - Erythema [Unknown]
  - Menstruation delayed [Unknown]

NARRATIVE: CASE EVENT DATE: 20251106
